FAERS Safety Report 5262558-2 (Version None)
Quarter: 2007Q1

REPORT INFORMATION
  Report Type: 
  Country: None (occurrence: None)
  Receive Date: 20070309
  Receipt Date: 20070309
  Transmission Date: 20070707
  Serious: Yes (Other)
  Sender: FDA-Public Use
  Company Number: None

PATIENT
  Age: 17 Year
  Sex: Female
  Weight: 61.6892 kg

DRUGS (5)
  1. MEPERIDINE HCL [Suspect]
     Indication: PREOPERATIVE CARE
     Dosage: 50 MG X1 IV
     Route: 042
     Dates: start: 20070227
  2. MEPERIDINE HCL [Suspect]
     Dosage: 75 MG Q3HRS PRN PAIN IM
     Route: 030
  3. MIDAZOLAM HCL [Concomitant]
  4. DEMEROL [Concomitant]
  5. TEMAZEPAM [Concomitant]

REACTIONS (1)
  - URTICARIA [None]
